FAERS Safety Report 6163607-X (Version None)
Quarter: 2009Q2

REPORT INFORMATION
  Report Type: 
  Country: None (occurrence: None)
  Receive Date: 20090422
  Receipt Date: 20090413
  Transmission Date: 20091009
  Serious: Yes (Life-Threatening, Hospitalization, Other)
  Sender: FDA-Public Use
  Company Number: JP-ABBOTT-09P-087-0560554-00

PATIENT
  Sex: Male
  Weight: 41.5 kg

DRUGS (8)
  1. PRERAN [Suspect]
     Indication: HYPERTENSION
     Route: 048
     Dates: start: 20081101, end: 20090317
  2. DILAZEP HYDROCHLORIDE [Concomitant]
     Indication: HYPERTENSION
     Route: 048
  3. NICARDIPINE HYDROCHLORIDE [Concomitant]
     Indication: HYPERTENSION
     Route: 048
  4. TELMISARTAN [Concomitant]
     Indication: HYPERTENSION
     Route: 048
  5. CALCITRIOL [Concomitant]
     Indication: RENAL FAILURE CHRONIC
     Route: 048
  6. CALCITRIOL [Concomitant]
     Indication: HYPERTENSION
  7. PRECIPITATED CALCIUM CARBONATE [Concomitant]
     Indication: RENAL FAILURE CHRONIC
     Route: 048
  8. LACTOMIN AMYLOLYTIC BACILLUS [Concomitant]
     Indication: DRUG USE FOR UNKNOWN INDICATION
     Route: 048

REACTIONS (2)
  - HAEMOGLOBIN DECREASED [None]
  - PLATELET COUNT DECREASED [None]
